FAERS Safety Report 8565881-9 (Version None)
Quarter: 2012Q3

REPORT INFORMATION
  Report Type: 
  Country: None (occurrence: None)
  Receive Date: 20120803
  Receipt Date: 20110913
  Transmission Date: 20120928
  Serious: No
  Sender: FDA-Public Use
  Company Number: US-ABBOTT-11P-163-0723054-00

PATIENT
  Sex: Female
  Weight: 65.83 kg

DRUGS (6)
  1. ASPIRIN [Concomitant]
     Indication: PRODUCT USED FOR UNKNOWN INDICATION
     Dosage: AT BEDTIME
     Route: 048
  2. UNKNOWN HORMONES [Suspect]
     Indication: PRODUCT USED FOR UNKNOWN INDICATION
  3. FLEXERIL [Concomitant]
     Indication: FIBROMYALGIA
  4. NIASPAN [Suspect]
     Indication: BLOOD CHOLESTEROL
     Dosage: AT BEDTIME
     Route: 048
  5. THYROID TAB [Concomitant]
     Indication: HYPOTHYROIDISM
  6. TRAZODONE HCL [Concomitant]
     Indication: PRODUCT USED FOR UNKNOWN INDICATION

REACTIONS (5)
  - NIGHT SWEATS [None]
  - ABDOMINAL DISCOMFORT [None]
  - FLUSHING [None]
  - FEELING OF BODY TEMPERATURE CHANGE [None]
  - BURNING SENSATION [None]
